FAERS Safety Report 13935883 (Version 1)
Quarter: 2017Q3

REPORT INFORMATION
  Report Type: Spontaneous
  Country: US (occurrence: US)
  Receive Date: 20170903
  Receipt Date: 20170903
  Transmission Date: 20171127
  Serious: Yes (Life-Threatening)
  Sender: FDA-Public Use
  Company Number: None

PATIENT
  Sex: Female
  Weight: 71.1 kg

DRUGS (8)
  1. MEDICAL GRADE CANNABIS [Concomitant]
  2. MONTELUKAST SOD 10 MG TABLET [Suspect]
     Active Substance: MONTELUKAST SODIUM
     Indication: ASTHMA
     Dosage: ?          QUANTITY:1 TABLET(S);?
     Route: 048
     Dates: start: 20170811, end: 20170903
  3. WOMEN^S ONCE DAILY VITAMIN [Concomitant]
  4. NAPROXIN SODIUM [Concomitant]
  5. VENTOLIN HFA [Concomitant]
     Active Substance: ALBUTEROL SULFATE
  6. QVAR [Concomitant]
     Active Substance: BECLOMETHASONE DIPROPIONATE
  7. MONTELUKAST SOD 10 MG TABLET [Suspect]
     Active Substance: MONTELUKAST SODIUM
     Indication: RHINITIS ALLERGIC
     Dosage: ?          QUANTITY:1 TABLET(S);?
     Route: 048
     Dates: start: 20170811, end: 20170903
  8. TENS UNIT [Concomitant]

REACTIONS (4)
  - Suicidal ideation [None]
  - Inappropriate schedule of drug administration [None]
  - Incorrect dose administered [None]
  - Mood altered [None]

NARRATIVE: CASE EVENT DATE: 20170903
